FAERS Safety Report 7064206-8 (Version None)
Quarter: 2010Q4

REPORT INFORMATION
  Report Type: 
  Country: None (occurrence: None)
  Receive Date: 20101027
  Receipt Date: 20101014
  Transmission Date: 20110411
  Serious: Yes (Hospitalization)
  Sender: FDA-Public Use
  Company Number: US-BAYER-201013955NA

PATIENT
  Age: 29 Year
  Sex: Female
  Weight: 83 kg

DRUGS (6)
  1. YAZ [Suspect]
     Indication: CYST
     Route: 048
     Dates: start: 20060101
  2. YASMIN [Suspect]
     Indication: CYST
     Route: 048
     Dates: start: 20060101
  3. OCELLA [Suspect]
     Indication: CYST
     Route: 048
     Dates: start: 20060101
  4. ALEVE (CAPLET) [Concomitant]
     Dates: start: 20020101, end: 20100101
  5. ANTIBIOTICS (NOS) [Concomitant]
     Dates: start: 20020101, end: 20100101
  6. PLAQUENIL [Concomitant]
     Indication: SYSTEMIC LUPUS ERYTHEMATOSUS
     Dates: start: 20020101, end: 20100101

REACTIONS (1)
  - GALLBLADDER INJURY [None]
